FAERS Safety Report 4643484-6 (Version None)
Quarter: 2005Q2

REPORT INFORMATION
  Report Type: 
  Country: None (occurrence: None)
  Receive Date: 20050328
  Receipt Date: 20040722
  Transmission Date: 20051028
  Serious: Yes (Other)
  Sender: FDA-Public Use
  Company Number: PHEH2003US07831

PATIENT
  Age: 53 Year
  Sex: Female

DRUGS (4)
  1. VIVELLE-DOT [Suspect]
     Indication: HORMONE REPLACEMENT THERAPY
     Dosage: 0.1 MG/TWICE WEEKLY, TRANSDERMAL; 0.1 MG/TWICE WEEKLY
     Route: 062
     Dates: start: 20020101, end: 20030719
  2. VIVELLE-DOT [Suspect]
     Indication: HORMONE REPLACEMENT THERAPY
     Dosage: 0.1 MG/TWICE WEEKLY, TRANSDERMAL; 0.1 MG/TWICE WEEKLY
     Route: 062
     Dates: start: 20030701
  3. ESTRADIOL [Suspect]
     Dosage: 2MG
     Dates: end: 20030719
  4. GLUCOPHAGE [Concomitant]

REACTIONS (5)
  - ALOPECIA [None]
  - BLOOD GLUCOSE DECREASED [None]
  - BREAST HYPERPLASIA [None]
  - DIABETES MELLITUS [None]
  - THERAPEUTIC RESPONSE UNEXPECTED [None]
